FAERS Safety Report 14971261 (Version 1)
Quarter: 2018Q2

REPORT INFORMATION
  Report Type: Report from Study
  Country: US (occurrence: US)
  Receive Date: 20180604
  Receipt Date: 20180604
  Transmission Date: 20180711
  Serious: Yes (Death)
  Sender: FDA-Public Use
  Company Number: US-ACTELION-A-US2018-170102

PATIENT
  Age: 61 Year
  Sex: Female

DRUGS (17)
  1. AMLODIPINE [Concomitant]
     Active Substance: AMLODIPINE BESYLATE
  2. PRORENAL VITAL [Concomitant]
     Active Substance: VITAMINS
  3. NEXIUM [Concomitant]
     Active Substance: ESOMEPRAZOLE MAGNESIUM
  4. TYLENOL [Concomitant]
     Active Substance: ACETAMINOPHEN
  5. SERTRALINE [Concomitant]
     Active Substance: SERTRALINE HYDROCHLORIDE
  6. VITAMIN B1 [Concomitant]
     Active Substance: THIAMINE HYDROCHLORIDE
  7. COREG [Concomitant]
     Active Substance: CARVEDILOL
  8. ZOLOFT [Concomitant]
     Active Substance: SERTRALINE HYDROCHLORIDE
  9. UPTRAVI [Concomitant]
     Active Substance: SELEXIPAG
  10. OPSUMIT [Suspect]
     Active Substance: MACITENTAN
     Indication: PULMONARY ARTERIAL HYPERTENSION
     Dosage: 10 MG, QD
     Route: 048
     Dates: start: 20160516, end: 20180420
  11. FOLIC ACID. [Concomitant]
     Active Substance: FOLIC ACID
  12. LYRICA [Concomitant]
     Active Substance: PREGABALIN
  13. RENVELA [Concomitant]
     Active Substance: SEVELAMER CARBONATE
  14. GLIPIZIDE. [Concomitant]
     Active Substance: GLIPIZIDE
  15. AMBIEN [Concomitant]
     Active Substance: ZOLPIDEM TARTRATE
  16. SILDENAFIL. [Concomitant]
     Active Substance: SILDENAFIL
  17. LOMOTIL [Concomitant]
     Active Substance: ATROPINE SULFATE\DIPHENOXYLATE HYDROCHLORIDE

REACTIONS (4)
  - Blood pressure abnormal [Not Recovered/Not Resolved]
  - Cerebral artery embolism [Fatal]
  - Thrombosis [Fatal]
  - Blood glucose abnormal [Not Recovered/Not Resolved]

NARRATIVE: CASE EVENT DATE: 20180420
